FAERS Safety Report 11891311 (Version 1)
Quarter: 2016Q1

REPORT INFORMATION
  Report Type: Spontaneous
  Country: None (occurrence: None)
  Receive Date: 20160105
  Receipt Date: 20160105
  Transmission Date: 20160526
  Serious: Yes (Hospitalization)
  Sender: FDA-Public Use
  Company Number: None

PATIENT
  Age: 80 Year
  Sex: Male

DRUGS (5)
  1. LISINOPRIL. [Concomitant]
     Active Substance: LISINOPRIL
  2. PREDNISONE. [Concomitant]
     Active Substance: PREDNISONE
  3. AMLODOPINE [Concomitant]
  4. ZYTIGA [Suspect]
     Active Substance: ABIRATERONE ACETATE
     Indication: PROSTATE CANCER
     Dosage: 4 TABLETS ONCE DAILY
     Route: 048
     Dates: start: 20140501
  5. NITROGLYCERIN. [Concomitant]
     Active Substance: NITROGLYCERIN

REACTIONS (2)
  - Chest pain [None]
  - Hypertension [None]

NARRATIVE: CASE EVENT DATE: 20151225
